FAERS Safety Report 16816757 (Version 1)
Quarter: 2019Q3

REPORT INFORMATION
  Report Type: Spontaneous
  Country: US (occurrence: US)
  Receive Date: 20190917
  Receipt Date: 20190917
  Transmission Date: 20191005
  Serious: No
  Sender: FDA-Public Use
  Company Number: US-ALLERGAN-1855249US

PATIENT

DRUGS (3)
  1. BENEFIBER [Concomitant]
     Active Substance: STARCH, WHEAT
  2. METAMUCIL [Concomitant]
     Active Substance: PLANTAGO SEED
  3. LINZESS [Suspect]
     Active Substance: LINACLOTIDE
     Indication: CONSTIPATION
     Dosage: 290 ?G, QAM
     Route: 065
     Dates: start: 201810

REACTIONS (4)
  - Constipation [Unknown]
  - Weight increased [Unknown]
  - Abdominal distension [Unknown]
  - Drug ineffective [Unknown]
